FAERS Safety Report 18276936 (Version 1)
Quarter: 2020Q3

REPORT INFORMATION
  Report Type: Spontaneous
  Country: US (occurrence: US)
  Receive Date: 20200916
  Receipt Date: 20200916
  Transmission Date: 20201103
  Serious: Yes (Other)
  Sender: FDA-Public Use
  Company Number: None

PATIENT
  Age: 85 Year
  Sex: Male
  Weight: 94.9 kg

DRUGS (8)
  1. PEMBROLIZUMAB 200MG Q 3 WEEKS [Concomitant]
     Dates: start: 20190323
  2. VITAMIN D [Concomitant]
     Active Substance: VITAMIN D NOS
  3. INLYTA [Suspect]
     Active Substance: AXITINIB
     Indication: COLON CANCER
     Route: 048
     Dates: start: 20200901, end: 20200915
  4. TYLENOL OTC PRN [Concomitant]
  5. FUROSEMIDE. [Concomitant]
     Active Substance: FUROSEMIDE
  6. VERAPAMIL ER [Concomitant]
     Active Substance: VERAPAMIL HYDROCHLORIDE
  7. LYRICA [Concomitant]
     Active Substance: PREGABALIN
  8. HYDROCORTISONE. [Concomitant]
     Active Substance: HYDROCORTISONE

REACTIONS (14)
  - Fall [None]
  - Dysphonia [None]
  - Somnolence [None]
  - Memory impairment [None]
  - Muscular weakness [None]
  - Dizziness [None]
  - Blood pressure increased [None]
  - Asthenia [None]
  - Fatigue [None]
  - Gait disturbance [None]
  - Dysphagia [None]
  - Pain [None]
  - Confusional state [None]
  - Unevaluable event [None]

NARRATIVE: CASE EVENT DATE: 20200907
